FAERS Safety Report 17134863 (Version 2)
Quarter: 2020Q1

REPORT INFORMATION
  Report Type: Report from Study
  Country: NL (occurrence: NL)
  Receive Date: 20191210
  Receipt Date: 20200114
  Transmission Date: 20200409
  Serious: Yes (Hospitalization)
  Sender: FDA-Public Use
  Company Number: NVSC2019NL062380

PATIENT
  Age: 29 Year
  Sex: Female

DRUGS (2)
  1. CHLOMIDE [Concomitant]
     Indication: OVULATION INDUCTION
     Dosage: UNK
     Route: 065
     Dates: start: 20150116, end: 20150113
  2. GILENYA [Suspect]
     Active Substance: FINGOLIMOD HYDROCHLORIDE
     Indication: MULTIPLE SCLEROSIS
     Dosage: UNK
     Route: 048
     Dates: start: 20140206, end: 20150107

REACTIONS (12)
  - Urinary tract infection [Unknown]
  - Gastroenteritis viral [Unknown]
  - Urinary tract infection [Unknown]
  - Migraine [Unknown]
  - Diarrhoea [Recovered/Resolved]
  - Hernia [Recovered/Resolved]
  - Infertility female [Unknown]
  - Nasopharyngitis [Unknown]
  - Vulvovaginal mycotic infection [Recovered/Resolved]
  - Varicella zoster virus infection [Recovered/Resolved]
  - Nasopharyngitis [Recovered/Resolved]
  - Constipation [Unknown]

NARRATIVE: CASE EVENT DATE: 20150116
